FAERS Safety Report 25653914 (Version 1)
Quarter: 2025Q3

REPORT INFORMATION
  Report Type: Spontaneous
  Country: US (occurrence: US)
  Receive Date: 20250807
  Receipt Date: 20250807
  Transmission Date: 20251021
  Serious: Yes (Other)
  Sender: CSL BEHRING
  Company Number: US-BEH-2025214978

PATIENT

DRUGS (2)
  1. ANDEMBRY [Suspect]
     Active Substance: GARADACIMAB-GXII
     Route: 065
     Dates: start: 202507
  2. DANAZOL [Concomitant]
     Active Substance: DANAZOL

REACTIONS (1)
  - Hereditary angioedema [Unknown]
